FAERS Safety Report 4867910-2 (Version None)
Quarter: 2005Q4

REPORT INFORMATION
  Report Type: 
  Country: None (occurrence: None)
  Receive Date: 20051227
  Receipt Date: 20051212
  Transmission Date: 20060501
  Serious: Yes (Death)
  Sender: FDA-Public Use
  Company Number: MK200512-0179-1

PATIENT
  Age: 43 Year
  Sex: Male
  Weight: 95 kg

DRUGS (1)
  1. MD-76 [Suspect]
     Indication: UROGRAM
     Dosage: 50 ML, ONE TIME, IV
     Route: 042
     Dates: start: 20051212, end: 20051212

REACTIONS (3)
  - HEART RATE DECREASED [None]
  - HYPERHIDROSIS [None]
  - VOMITING [None]
